FAERS Safety Report 6472732-5 (Version None)
Quarter: 2009Q4

REPORT INFORMATION
  Report Type: 
  Country: None (occurrence: None)
  Receive Date: 20091201
  Receipt Date: 20091116
  Transmission Date: 20100525
  Serious: Yes (Hospitalization)
  Sender: FDA-Public Use
  Company Number: SPV1-2009-02165

PATIENT
  Age: 73 Year
  Sex: Female

DRUGS (2)
  1. XAGRID(ANAGRELIDE HYDROCHLORIDE) CAPSULE [Suspect]
     Indication: ESSENTIAL THROMBOCYTHAEMIA
     Dosage: 0.5 MG, 3X/DAY;TID, ORAL
     Route: 048
     Dates: start: 20080101
  2. ARANESP [Concomitant]

REACTIONS (1)
  - VASCULITIS CEREBRAL [None]
